FAERS Safety Report 4316581-2 (Version None)
Quarter: 2004Q1

REPORT INFORMATION
  Report Type: 
  Country: None (occurrence: None)
  Receive Date: 20040312
  Receipt Date: 20040226
  Transmission Date: 20041129
  Serious: Yes (Death)
  Sender: FDA-Public Use
  Company Number: 2004S1000598

PATIENT
  Age: 45 Year
  Sex: Male

DRUGS (1)
  1. CLOZAPINE [Suspect]
     Dosage: 100 GM Q AM + 300MG Q HS, ORAL
     Route: 048

REACTIONS (1)
  - DEATH [None]
